FAERS Safety Report 17357986 (Version 1)
Quarter: 2020Q1

REPORT INFORMATION
  Report Type: Other
  Country: DK (occurrence: DK)
  Receive Date: 20200131
  Receipt Date: 20200131
  Transmission Date: 20200409
  Serious: Yes (Death, Hospitalization)
  Sender: FDA-Public Use
  Company Number: DK-CELLTRION INC.-2020DK018548

PATIENT

DRUGS (5)
  1. ELTROXIN [Concomitant]
     Active Substance: LEVOTHYROXINE
     Indication: HYPOTHYROIDISM
     Dosage: 150 MICROGRAM, DAILY (PHARMACEUTICAL DOSE FORM: 245)
     Route: 048
     Dates: start: 20121217
  2. ALLOPURINOL. [Concomitant]
     Active Substance: ALLOPURINOL
     Indication: GOUT
     Dosage: 100 MG, DAILY (PHARMACEUTICAL DOSE FORM: 245)
     Route: 048
     Dates: start: 20130626
  3. ENALAPRIL [Concomitant]
     Active Substance: ENALAPRIL
     Indication: HYPERTENSION
     Dosage: 10 MG, DAILY (PHARMACEUTICAL DOSE FORM: 245)
     Route: 048
     Dates: start: 20151009
  4. APIXABAN [Concomitant]
     Active Substance: APIXABAN
     Indication: THROMBOSIS PROPHYLAXIS
     Dosage: 10 MG, DAILY (PHARMACEUTICAL DOSE FORM: 82)
     Route: 048
     Dates: start: 20130606
  5. RITEMVIA [Suspect]
     Active Substance: RITUXIMAB
     Indication: LYMPHOMA
     Dosage: 800 MG, EVERY 56 DAYS (PHARMACEUTICAL DOSE FORM: 16)
     Route: 042
     Dates: start: 20190410, end: 20190925

REACTIONS (8)
  - Sepsis [Fatal]
  - Stomatitis [Fatal]
  - Toxic epidermal necrolysis [Fatal]
  - Pneumonia [Fatal]
  - Stevens-Johnson syndrome [Fatal]
  - Skin exfoliation [Fatal]
  - Multiple organ dysfunction syndrome [Fatal]
  - Rash erythematous [Fatal]

NARRATIVE: CASE EVENT DATE: 201908
